FAERS Safety Report 4870632-5 (Version None)
Quarter: 2005Q4

REPORT INFORMATION
  Report Type: 
  Country: None (occurrence: None)
  Receive Date: 20051228
  Receipt Date: 20051209
  Transmission Date: 20060501
  Serious: Yes (Hospitalization, Other)
  Sender: FDA-Public Use
  Company Number: US200512001975

PATIENT
  Age: 69 Year
  Sex: Female

DRUGS (3)
  1. HUMALOG [Suspect]
     Indication: DIABETES MELLITUS
  2. HUMULIN N [Suspect]
     Indication: DIABETES MELLITUS
     Dosage: 19 U, DAILY (1/D)
  3. HUMULIN 70/30 [Suspect]
     Indication: DIABETES MELLITUS
     Dosage: 18 U, DAILY (1/D)

REACTIONS (6)
  - BLOOD GLUCOSE INCREASED [None]
  - ERYTHEMA [None]
  - PERIPHERAL VASCULAR DISORDER [None]
  - SKIN DISORDER [None]
  - SKIN LACERATION [None]
  - VENOUS STASIS [None]
